FAERS Safety Report 18592636 (Version 1)
Quarter: 2020Q4

REPORT INFORMATION
  Report Type: Report from Study
  Country: NL (occurrence: NL)
  Receive Date: 20201209
  Receipt Date: 20201209
  Transmission Date: 20210114
  Serious: Yes (Hospitalization, Other)
  Sender: FDA-Public Use
  Company Number: NL-AMGEN-NLDSL2020199636

PATIENT
  Age: 70 Year
  Sex: Female

DRUGS (4)
  1. XGEVA [Suspect]
     Active Substance: DENOSUMAB
     Indication: PROPHYLAXIS
     Dosage: 120 MILLIGRAM/,7ML 1 IN, Q4WK
     Route: 058
  2. PANTOPRAZOLE [Concomitant]
     Active Substance: PANTOPRAZOLE
     Dosage: 40 MILLIGRAM, QD
     Route: 065
  3. PALBOCICLIB [Concomitant]
     Active Substance: PALBOCICLIB
     Dosage: 125 MILLIGRAM, QD
     Route: 065
  4. CALCIUM CARBONATE;COLECALCIFEROL [Concomitant]
     Active Substance: CALCIUM CARBONATE\CHOLECALCIFEROL
     Dosage: 2,5G/880IE /1000 MILLIGRAM, QD
     Route: 065

REACTIONS (2)
  - Sepsis [Unknown]
  - Pelvic inflammatory disease [Unknown]
